FAERS Safety Report 10228609 (Version 1)
Quarter: 2014Q2

REPORT INFORMATION
  Report Type: Spontaneous
  Country: US (occurrence: US)
  Receive Date: 20140610
  Receipt Date: 20140610
  Transmission Date: 20141212
  Serious: No
  Sender: FDA-Public Use
  Company Number: US-ASTRAZENECA-2014SE39047

PATIENT
  Age: 58 Year
  Sex: Female
  Weight: 79.4 kg

DRUGS (4)
  1. NEXIUM 24 HR [Suspect]
     Indication: GASTRIC ULCER
     Route: 048
  2. NEXIUM 24 HR [Suspect]
     Indication: GASTRIC ULCER
     Route: 048
     Dates: start: 20140526
  3. LISINOPRIL [Concomitant]
     Indication: HYPERTENSION
  4. LEVOTHYROXINE [Concomitant]
     Indication: THYROID DISORDER

REACTIONS (4)
  - Flatulence [Unknown]
  - Abdominal pain upper [Unknown]
  - Intentional product misuse [Unknown]
  - Drug ineffective [Unknown]
